FAERS Safety Report 24301439 (Version 2)
Quarter: 2024Q3

REPORT INFORMATION
  Report Type: Spontaneous
  Country: GR (occurrence: GR)
  Receive Date: 20240910
  Receipt Date: 20240930
  Transmission Date: 20241016
  Serious: Yes (Other)
  Sender: TAKEDA
  Company Number: GR-TAKEDA-2024TUS078420

PATIENT
  Age: 46 Year
  Sex: Female

DRUGS (1)
  1. HYQVIA [Suspect]
     Active Substance: HUMAN IMMUNOGLOBULIN G\HYALURONIDASE (HUMAN RECOMBINANT)
     Indication: Inflammation
     Dosage: UNK
     Route: 058

REACTIONS (5)
  - Urinary retention [Recovered/Resolved]
  - Drug ineffective [Unknown]
  - Abdominal distension [Recovered/Resolved]
  - Infusion site swelling [Recovered/Resolved]
  - Vomiting [Recovered/Resolved]
